FAERS Safety Report 15822492 (Version 1)
Quarter: 2019Q1

REPORT INFORMATION
  Report Type: Spontaneous
  Country: HR (occurrence: HR)
  Receive Date: 20190114
  Receipt Date: 20190114
  Transmission Date: 20190417
  Serious: Yes (Other)
  Sender: FDA-Public Use
  Company Number: HR-ASTRAZENECA-2019SE03280

PATIENT
  Sex: Male

DRUGS (1)
  1. QUETIAPINE. [Suspect]
     Active Substance: QUETIAPINE
     Dosage: 300.0MG UNKNOWN
     Route: 048
     Dates: start: 20181015, end: 20181015

REACTIONS (6)
  - Agitation [Unknown]
  - Mobility decreased [Unknown]
  - Depressed level of consciousness [Unknown]
  - Intentional overdose [Unknown]
  - Suicide attempt [Unknown]
  - Urinary retention [Unknown]

NARRATIVE: CASE EVENT DATE: 20181015
